FAERS Safety Report 9645659 (Version 7)
Quarter: 2014Q1

REPORT INFORMATION
  Report Type: Spontaneous
  Country: US (occurrence: US)
  Receive Date: 20131025
  Receipt Date: 20140324
  Transmission Date: 20141002
  Serious: Yes (Hospitalization, Disabling, Other)
  Sender: FDA-Public Use
  Company Number: US-009507513-1203USA02447

PATIENT
  Sex: Female
  Weight: 84.81 kg

DRUGS (4)
  1. FOSAMAX [Suspect]
     Indication: OSTEOPOROSIS
     Dosage: 70 MG, UNK
     Route: 048
     Dates: start: 20001128, end: 201012
  2. FOSAMAX [Suspect]
     Indication: OSTEOPENIA
     Dosage: UNK
     Route: 048
     Dates: start: 20000802, end: 20100311
  3. FOSAMAX [Suspect]
     Dosage: 10 MG, QD
     Route: 048
  4. ALENDRONATE SODIUM [Suspect]
     Dosage: 70 MG, QW
     Route: 048

REACTIONS (37)
  - Femur fracture [Not Recovered/Not Resolved]
  - Intramedullary rod insertion [Unknown]
  - Femur fracture [Recovered/Resolved]
  - Intramedullary rod insertion [Unknown]
  - Bone graft [Unknown]
  - Removal of internal fixation [Unknown]
  - Fracture nonunion [Unknown]
  - Open reduction of fracture [Unknown]
  - Packed red blood cell transfusion [Unknown]
  - Arthrodesis [Unknown]
  - Fall [Unknown]
  - Fall [Unknown]
  - Blood cholesterol increased [Unknown]
  - Breast lump removal [Unknown]
  - Skin lesion excision [Unknown]
  - Tonsillectomy [Unknown]
  - Adenoidectomy [Unknown]
  - Ecchymosis [Recovered/Resolved]
  - Excoriation [Recovering/Resolving]
  - Amenorrhoea [Unknown]
  - Fall [Unknown]
  - Spinal osteoarthritis [Unknown]
  - Scoliosis [Unknown]
  - Pelvic fracture [Unknown]
  - Hypercoagulation [Unknown]
  - Breast mass [Unknown]
  - Depression [Unknown]
  - Cyanosis [Unknown]
  - Device breakage [Unknown]
  - Osteoarthritis [Unknown]
  - Medical device complication [Unknown]
  - Hypertension [Unknown]
  - Neuropathy peripheral [Unknown]
  - Gastrointestinal haemorrhage [Unknown]
  - International normalised ratio increased [Unknown]
  - Spinal osteoarthritis [Unknown]
  - Gastrooesophageal reflux disease [Unknown]
